FAERS Safety Report 9379455 (Version 1)
Quarter: 2013Q3

REPORT INFORMATION
  Report Type: Spontaneous
  Country: US (occurrence: US)
  Receive Date: 20130702
  Receipt Date: 20130702
  Transmission Date: 20140515
  Serious: Yes (Other)
  Sender: FDA-Public Use
  Company Number: US-JNJFOC-20130616553

PATIENT
  Age: 62 Year
  Sex: Male
  Weight: 76.66 kg

DRUGS (2)
  1. REMICADE [Suspect]
     Indication: RHEUMATOID ARTHRITIS
     Route: 042
     Dates: start: 2012
  2. METHOTREXATE [Concomitant]
     Indication: RHEUMATOID ARTHRITIS
     Dosage: STRENGTH: 2.5 MG 2 TABLETS ONCE WEEKLY
     Route: 048
     Dates: start: 2004

REACTIONS (1)
  - Prostate cancer [Not Recovered/Not Resolved]
